FAERS Safety Report 6704462-6 (Version None)
Quarter: 2010Q2

REPORT INFORMATION
  Report Type: 
  Country: None (occurrence: None)
  Receive Date: 20100430
  Receipt Date: 20100421
  Transmission Date: 20101027
  Serious: Yes (Hospitalization)
  Sender: FDA-Public Use
  Company Number: GXKR2010IT04502

PATIENT
  Age: 66 Year
  Sex: Female

DRUGS (7)
  1. TRAZODONE (NGX) [Suspect]
     Indication: ANTIDEPRESSANT THERAPY
     Dosage: 9 DF (TABLET ER), (TOTAL 675 MGL)
     Route: 048
  2. VENLAFAXINE HCL [Suspect]
     Indication: ANTIDEPRESSANT THERAPY
     Route: 048
  3. SERTRALINE HCL [Suspect]
     Indication: ANTIDEPRESSANT THERAPY
     Route: 048
  4. CLONAZEPAM (NGX) [Suspect]
     Indication: DEPRESSION
     Dosage: UNK MG, UNK
     Route: 048
  5. CYMBALTA [Suspect]
     Indication: ANTIDEPRESSANT THERAPY
     Dosage: 9 DF, (TOTAL 540 MG)
     Route: 065
  6. GABAPENTIN [Concomitant]
     Indication: NEURALGIA
  7. ANTIINFLAMMATORY/ANTIRHEUMATIC PRODUCTS [Concomitant]

REACTIONS (11)
  - AGITATION [None]
  - CARDIOVASCULAR DISORDER [None]
  - CONFUSIONAL STATE [None]
  - DISORIENTATION [None]
  - HEART RATE ABNORMAL [None]
  - HYPOTENSION [None]
  - MENTAL STATUS CHANGES [None]
  - OVERDOSE [None]
  - SOMNOLENCE [None]
  - SPEECH DISORDER [None]
  - SUICIDE ATTEMPT [None]
